FAERS Safety Report 6591042-9 (Version None)
Quarter: 2010Q1

REPORT INFORMATION
  Report Type: 
  Country: None (occurrence: None)
  Receive Date: 20100219
  Receipt Date: 20100211
  Transmission Date: 20100710
  Serious: Yes (Life-Threatening, Hospitalization)
  Sender: FDA-Public Use
  Company Number: US-MPIJNJ-2010-01218

PATIENT
  Sex: Female
  Weight: 57.5 kg

DRUGS (8)
  1. VELCADE [Suspect]
     Indication: MANTLE CELL LYMPHOMA
     Dosage: 1.7 MG, CYCLIC
     Route: 042
     Dates: start: 20100104, end: 20100111
  2. RITUXIMAB [Suspect]
     Indication: MANTLE CELL LYMPHOMA
  3. CYCLOPHOSPHAMIDE [Suspect]
     Indication: MANTLE CELL LYMPHOMA
  4. VINCRISTINE [Suspect]
     Indication: MANTLE CELL LYMPHOMA
  5. DOXORUBICIN HCL [Suspect]
     Indication: MANTLE CELL LYMPHOMA
  6. DEXAMETHASONE [Suspect]
     Indication: MANTLE CELL LYMPHOMA
  7. METHOTREXATE [Suspect]
     Indication: MANTLE CELL LYMPHOMA
  8. CYTARABINE [Suspect]
     Indication: MANTLE CELL LYMPHOMA

REACTIONS (29)
  - ACUTE RESPIRATORY FAILURE [None]
  - ATELECTASIS [None]
  - BLOOD PRESSURE SYSTOLIC INCREASED [None]
  - BLOOD UREA INCREASED [None]
  - BRONCHOSPASM [None]
  - CHRONIC OBSTRUCTIVE PULMONARY DISEASE [None]
  - CONDITION AGGRAVATED [None]
  - DIZZINESS [None]
  - ECCHYMOSIS [None]
  - FACE INJURY [None]
  - FALL [None]
  - FEBRILE NEUTROPENIA [None]
  - HAEMATOCRIT DECREASED [None]
  - HAEMOGLOBIN DECREASED [None]
  - HYPOKALAEMIA [None]
  - HYPOTENSION [None]
  - LYMPHOCYTE COUNT DECREASED [None]
  - MONOCYTE COUNT INCREASED [None]
  - NAUSEA [None]
  - NEUTROPHIL COUNT INCREASED [None]
  - OLIGURIA [None]
  - PLATELET COUNT DECREASED [None]
  - PLEURAL EFFUSION [None]
  - PNEUMONIA [None]
  - RESPIRATORY ARREST [None]
  - SEPTIC SHOCK [None]
  - STRIDOR [None]
  - WHITE BLOOD CELL COUNT DECREASED [None]
  - WHITE BLOOD CELL COUNT INCREASED [None]
